FAERS Safety Report 15138725 (Version 1)
Quarter: 2018Q3

REPORT INFORMATION
  Report Type: Report from Study
  Country: JP (occurrence: JP)
  Receive Date: 20180713
  Receipt Date: 20180713
  Transmission Date: 20181010
  Serious: Yes (Other)
  Sender: FDA-Public Use
  Company Number: JP-ROCHE-GNE283381

PATIENT
  Age: 60 Year
  Sex: Male

DRUGS (2)
  1. RANIBIZUMAB. [Suspect]
     Active Substance: RANIBIZUMAB
     Indication: AGE-RELATED MACULAR DEGENERATION
     Dosage: 0.05 ML, UNK
     Route: 050
     Dates: start: 20090416, end: 20090416
  2. GATIFLO [Concomitant]
     Active Substance: GATIFLOXACIN
     Route: 065

REACTIONS (9)
  - Corneal disorder [Recovering/Resolving]
  - Iris adhesions [Not Recovered/Not Resolved]
  - Conjunctival hyperaemia [Recovering/Resolving]
  - Blood alkaline phosphatase increased [Unknown]
  - Hyperaemia [Recovering/Resolving]
  - Corneal disorder [Unknown]
  - Anterior chamber inflammation [Recovered/Resolved]
  - Lacrimation increased [Recovering/Resolving]
  - Uveitis [Unknown]

NARRATIVE: CASE EVENT DATE: 20090427
